FAERS Safety Report 16029630 (Version 3)
Quarter: 2019Q2

REPORT INFORMATION
  Report Type: Report from Study
  Country: CA (occurrence: CA)
  Receive Date: 20190304
  Receipt Date: 20190411
  Transmission Date: 20190711
  Serious: Yes (Hospitalization, Other)
  Sender: FDA-Public Use
  Company Number: CA-009507513-1807CAN008727

PATIENT
  Age: 34 Year
  Sex: Female
  Weight: 57.4 kg

DRUGS (7)
  1. PEMBROLIZUMAB. [Suspect]
     Active Substance: PEMBROLIZUMAB
     Dosage: 200 MILLIGRAM, Q3W; STRENGTH 2 MG/ML
     Route: 042
     Dates: start: 2018
  2. PEMBROLIZUMAB. [Suspect]
     Active Substance: PEMBROLIZUMAB
     Dosage: 200 MILLIGRAM, Q3W;STRENGTH 2 MG/ML
     Route: 042
     Dates: start: 2018, end: 20181130
  3. PREDNISONE. [Concomitant]
     Active Substance: PREDNISONE
     Indication: HODGKIN^S DISEASE
  4. EFFEXOR XR [Concomitant]
     Active Substance: VENLAFAXINE HYDROCHLORIDE
     Indication: DEPRESSION
     Route: 048
  5. PEMBROLIZUMAB. [Suspect]
     Active Substance: PEMBROLIZUMAB
     Indication: HODGKIN^S DISEASE
     Dosage: 200 MG, Q3W (STRENGTH 2MG/KG (2 DF))
     Route: 042
     Dates: start: 20180717
  6. PEMBROLIZUMAB. [Suspect]
     Active Substance: PEMBROLIZUMAB
     Dosage: 200 MILLIGRAM, Q3W, STRENGTH: 2MG/KG
     Route: 042
     Dates: start: 20190405
  7. PEMBROLIZUMAB. [Suspect]
     Active Substance: PEMBROLIZUMAB
     Dosage: 200 MG, Q3W (STRENGTH 2MG/KG)
     Route: 042
     Dates: start: 20190222

REACTIONS (48)
  - Hot flush [Unknown]
  - Sinus pain [Unknown]
  - Constipation [Unknown]
  - Somnolence [Unknown]
  - Headache [Recovered/Resolved]
  - Weight fluctuation [Recovered/Resolved]
  - Diarrhoea [Unknown]
  - Abdominal pain [Unknown]
  - Product dose omission [Unknown]
  - Stress [Unknown]
  - Dysphagia [Unknown]
  - Arthralgia [Recovered/Resolved]
  - Rash [Not Recovered/Not Resolved]
  - Meningitis [Unknown]
  - Influenza [Recovering/Resolving]
  - Breath sounds abnormal [Unknown]
  - Feeling of body temperature change [Unknown]
  - Bone disorder [Unknown]
  - Liver disorder [Unknown]
  - Agitation [Not Recovered/Not Resolved]
  - Autoimmune disorder [Recovered/Resolved]
  - Abdominal discomfort [Unknown]
  - Blood pressure increased [Unknown]
  - Fatigue [Unknown]
  - Pruritus [Not Recovered/Not Resolved]
  - Blood pressure abnormal [Unknown]
  - Inappropriate schedule of product administration [Unknown]
  - Meningoencephalitis herpetic [Unknown]
  - Adverse event [Unknown]
  - Malaise [Unknown]
  - Dyspepsia [Unknown]
  - Chills [Unknown]
  - Headache [Unknown]
  - Blood pressure fluctuation [Unknown]
  - Vital functions abnormal [Recovered/Resolved]
  - Decreased appetite [Unknown]
  - Arthralgia [Unknown]
  - Cold sweat [Unknown]
  - Lymphadenopathy [Unknown]
  - Abdominal pain upper [Unknown]
  - Hyperhidrosis [Unknown]
  - Fatigue [Recovered/Resolved]
  - Pain [Recovered/Resolved]
  - Adverse event [Unknown]
  - Pyrexia [Recovered/Resolved]
  - Cough [Recovered/Resolved]
  - Pneumonia [Recovering/Resolving]
  - Hypertension [Recovered/Resolved]

NARRATIVE: CASE EVENT DATE: 2018
